FAERS Safety Report 8579227-3 (Version None)
Quarter: 2012Q3

REPORT INFORMATION
  Report Type: 
  Country: None (occurrence: None)
  Receive Date: 20120808
  Receipt Date: 20120802
  Transmission Date: 20120928
  Serious: Yes (Hospitalization)
  Sender: FDA-Public Use
  Company Number: US-ROCHE-1096512

PATIENT
  Age: 61 Year
  Sex: Female
  Weight: 49.3 kg

DRUGS (2)
  1. AVASTIN [Suspect]
     Indication: OVARIAN EPITHELIAL CANCER
     Dosage: DATE OF LAST DSOE RECEIVED 17/JUL/2012
     Dates: start: 20120605
  2. BLINDED EVEROLIMUS [Suspect]
     Indication: OVARIAN EPITHELIAL CANCER
     Dosage: DATE OF LAST DOSE RECEIVED 17/JUL/2012
     Dates: start: 20120605

REACTIONS (4)
  - OESOPHAGITIS [None]
  - NAUSEA [None]
  - VOMITING [None]
  - DECREASED APPETITE [None]
